FAERS Safety Report 5234653-5 (Version None)
Quarter: 2007Q1

REPORT INFORMATION
  Report Type: 
  Country: None (occurrence: None)
  Receive Date: 20070209
  Receipt Date: 20070129
  Transmission Date: 20070707
  Serious: Yes (Hospitalization)
  Sender: FDA-Public Use
  Company Number: US-ELI_LILLY_AND_COMPANY-US200701006019

PATIENT
  Age: 81 Year
  Sex: Male

DRUGS (6)
  1. CIALIS [Suspect]
     Indication: ERECTILE DYSFUNCTION
     Dosage: 20 MG, UNKNOWN
     Dates: start: 20070101
  2. CIALIS [Suspect]
     Dosage: 10 MG, UNKNOWN
     Dates: start: 20070101
  3. FOSINOPRIL SODIUM [Concomitant]
     Indication: HYPERTENSION
     Dosage: 10 MG, UNKNOWN
  4. FOSINOPRIL SODIUM [Concomitant]
     Dosage: 5 MG, UNKNOWN
     Dates: start: 20070101
  5. HYDROCORTISONE [Concomitant]
     Indication: BACK PAIN
     Dosage: 100 MG, UNKNOWN
  6. XANAX [Concomitant]
     Dosage: 5 MG, UNKNOWN

REACTIONS (5)
  - DISCOMFORT [None]
  - FLUSHING [None]
  - LOSS OF CONSCIOUSNESS [None]
  - MALAISE [None]
  - VOMITING [None]
